FAERS Safety Report 8134385-X (Version None)
Quarter: 2012Q1

REPORT INFORMATION
  Report Type: 
  Country: None (occurrence: None)
  Receive Date: 20120209
  Receipt Date: 20120126
  Transmission Date: 20120608
  Serious: Yes (Hospitalization)
  Sender: FDA-Public Use
  Company Number: DSJ-2012-01570

PATIENT
  Age: 6 Decade
  Sex: Female

DRUGS (7)
  1. BENICAR HCT [Suspect]
     Indication: HYPERTENSION
     Dosage: 20/12.5MG (1 IN 1 D), PER ORAL ; 40/12.5 MG (1 IN 1 D), PER ORAL
     Route: 048
     Dates: start: 20120103
  2. BENICAR HCT [Suspect]
     Indication: HYPERTENSION
     Dosage: 20/12.5MG (1 IN 1 D), PER ORAL ; 40/12.5 MG (1 IN 1 D), PER ORAL
     Route: 048
     Dates: start: 20090101, end: 20120102
  3. AMLODIPINE [Suspect]
     Indication: ARRHYTHMIA
     Dosage: 5 MG, PER ORAL
     Route: 048
     Dates: start: 20111001, end: 20120102
  4. CLONAZEPAM [Suspect]
     Indication: ARRHYTHMIA
     Dosage: PER ORAL
     Route: 048
     Dates: start: 20111001, end: 20120102
  5. CLONIDINE [Suspect]
     Indication: HYPERTENSION
     Dosage: PER ORAL
     Route: 048
     Dates: start: 20110101, end: 20111015
  6. AMIODARONE HCL [Suspect]
     Indication: ARRHYTHMIA
     Dosage: 200 MG, PER ORAL
     Route: 048
     Dates: start: 20111001, end: 20120102
  7. ATENOLOL [Suspect]
     Indication: HYPERTENSION
     Dosage: PER ORAL
     Route: 048
     Dates: end: 20111015

REACTIONS (4)
  - ARRHYTHMIA [None]
  - SOMNOLENCE [None]
  - DRUG INEFFECTIVE [None]
  - OEDEMA PERIPHERAL [None]
